FAERS Safety Report 7479164-1 (Version None)
Quarter: 2011Q2

REPORT INFORMATION
  Report Type: 
  Country: None (occurrence: None)
  Receive Date: 20110513
  Receipt Date: 20110505
  Transmission Date: 20111010
  Serious: Yes (Hospitalization, Other)
  Sender: FDA-Public Use
  Company Number: CA-ABBOTT-09P-028-0614258-00

PATIENT
  Sex: Female
  Weight: 54.48 kg

DRUGS (7)
  1. VITAMIN D [Concomitant]
     Indication: OSTEOPOROSIS
     Route: 048
     Dates: start: 20090101
  2. HUMIRA [Suspect]
     Route: 058
     Dates: end: 20100101
  3. HUMIRA [Suspect]
     Dosage: 80 MG LOADING DOSE
     Route: 058
  4. HUMIRA [Suspect]
     Dates: start: 20100701
  5. HUMIRA [Suspect]
     Indication: CROHN'S DISEASE
     Dosage: 160MG LOADING DOSE
     Route: 058
     Dates: start: 20090923, end: 20090923
  6. IBUPROFEN [Concomitant]
     Indication: PYREXIA
     Route: 048
  7. ZOLEDRONIC ACID [Concomitant]
     Indication: OSTEOPOROSIS
     Route: 042
     Dates: start: 20080101

REACTIONS (9)
  - PYREXIA [None]
  - INTESTINAL FISTULA [None]
  - LARGE INTESTINE PERFORATION [None]
  - CROHN'S DISEASE [None]
  - FISTULA DISCHARGE [None]
  - GASTROINTESTINAL INFLAMMATION [None]
  - ARTHRALGIA [None]
  - LOCALISED INFECTION [None]
  - ABSCESS [None]
